FAERS Safety Report 9922476 (Version 1)
Quarter: 2014Q1

REPORT INFORMATION
  Report Type: Spontaneous
  Country: US (occurrence: None)
  Receive Date: 20140224
  Receipt Date: 20140224
  Transmission Date: 20141002
  Serious: Yes (Hospitalization)
  Sender: FDA-Public Use
  Company Number: None

PATIENT
  Age: 71 Year
  Sex: Female
  Weight: 63.5 kg

DRUGS (1)
  1. TUDORZA [Suspect]
     Indication: COUGH
     Dosage: 1 INHLATION 2X/DAY TWICE DAILY INHLATION
     Dates: start: 20131209, end: 20140127

REACTIONS (3)
  - Headache [None]
  - Fatigue [None]
  - Photophobia [None]
